FAERS Safety Report 5243546-9 (Version None)
Quarter: 2007Q1

REPORT INFORMATION
  Report Type: 
  Country: None (occurrence: None)
  Receive Date: 20070222
  Receipt Date: 20070207
  Transmission Date: 20070707
  Serious: Yes (Hospitalization, Other)
  Sender: FDA-Public Use
  Company Number: PHEH2006US14292

PATIENT
  Age: 69 Year
  Sex: Female

DRUGS (3)
  1. ZELNORM [Suspect]
     Indication: ABDOMINAL DISTENSION
     Dosage: 6 MG, BID
     Route: 048
     Dates: start: 20060908, end: 20060929
  2. PREVACID [Concomitant]
     Dosage: UNK, UNK
     Dates: start: 20060908, end: 20060914
  3. PROTONIX [Concomitant]
     Dosage: UNK, UNK
     Dates: start: 20060915, end: 20060929

REACTIONS (12)
  - ABDOMINAL PAIN [None]
  - ANAL INFLAMMATION [None]
  - ANORECTAL DISORDER [None]
  - BLOOD POTASSIUM DECREASED [None]
  - BOWEL MOVEMENT IRREGULARITY [None]
  - CONSTIPATION [None]
  - DEHYDRATION [None]
  - DIARRHOEA [None]
  - DIZZINESS [None]
  - HAEMATOCHEZIA [None]
  - HYPOCHONDRIASIS [None]
  - WEIGHT DECREASED [None]
